FAERS Safety Report 18386031 (Version 1)
Quarter: 2020Q4

REPORT INFORMATION
  Report Type: Spontaneous
  Country: DE (occurrence: DE)
  Receive Date: 20201015
  Receipt Date: 20201015
  Transmission Date: 20210114
  Serious: Yes (Hospitalization, Other)
  Sender: FDA-Public Use
  Company Number: DE-ACCORD-205177

PATIENT
  Age: 82 Year
  Sex: Female
  Weight: 93 kg

DRUGS (9)
  1. NOVALGIN [Concomitant]
     Dosage: STRENGTH: 500 MG, IF NECESSARY1-1-1-1
  2. CARBOPLATIN. [Suspect]
     Active Substance: CARBOPLATIN
     Indication: METASTASES TO PERITONEUM
     Dosage: 6 CYCLES OF CARBOPLATIN AUC 5 D1 IN COMB INATION WITH CAELYX 20 D1 Q28D
     Route: 042
     Dates: start: 20200218, end: 20200729
  3. NIRAPARIB [Suspect]
     Active Substance: NIRAPARIB
     Indication: OVARIAN CANCER
     Dosage: 300 MG /D NIRAPARIB
     Route: 042
     Dates: start: 20200826
  4. CAELYX [Suspect]
     Active Substance: DOXORUBICIN HYDROCHLORIDE
     Indication: METASTASES TO PERITONEUM
     Dosage: 6 CYCLES OF CARBOPLATIN AUC 5 D1 IN COMBI NATION WITH CAELYX 20 D1 Q28D
     Route: 042
     Dates: start: 20200218, end: 20200729
  5. TORASEMIDE/TORASEMIDE SODIUM [Concomitant]
     Active Substance: TORSEMIDE
     Dosage: TORASEMID 10 MG 1/2-0-1/2, STRENGTH:  10 MG
  6. VIGANTOL [Concomitant]
     Indication: OSTEOPOROSIS
     Dosage: STRENGTH: 1000 IU, VIGANTOL 1000 IE 0-0-1 1X TGL
  7. NIRAPARIB [Suspect]
     Active Substance: NIRAPARIB
     Indication: OVARIAN CANCER
     Dosage: NIRAPARIB ORAL
     Route: 048
  8. AMIODARONE [Concomitant]
     Active Substance: AMIODARONE
     Dosage: 1-0-0, STRENGTH: 200 MG
  9. ELIQUIS [Concomitant]
     Active Substance: APIXABAN
     Dosage: 1-0-1, STRENGTH: 5 MG

REACTIONS (2)
  - Bone marrow failure [Not Recovered/Not Resolved]
  - Off label use [Unknown]

NARRATIVE: CASE EVENT DATE: 20200921
